FAERS Safety Report 18345266 (Version 1)
Quarter: 2020Q4

REPORT INFORMATION
  Report Type: Spontaneous
  Country: US (occurrence: US)
  Receive Date: 20201005
  Receipt Date: 20201005
  Transmission Date: 20210114
  Serious: No
  Sender: FDA-Public Use
  Company Number: US-ALLERGAN-1944678US

PATIENT
  Sex: Female

DRUGS (3)
  1. CITRUCEL [Concomitant]
     Active Substance: METHYLCELLULOSE (4000 MPA.S)
  2. LINZESS [Suspect]
     Active Substance: LINACLOTIDE
     Indication: IMPAIRED GASTRIC EMPTYING
     Dosage: UNK
     Route: 065
  3. BENEFIBER [Concomitant]
     Active Substance: STARCH, WHEAT

REACTIONS (3)
  - Drug ineffective [Unknown]
  - Off label use [Unknown]
  - Abdominal pain upper [Recovered/Resolved]
